FAERS Safety Report 7058479-5 (Version None)
Quarter: 2010Q4

REPORT INFORMATION
  Report Type: 
  Country: None (occurrence: None)
  Receive Date: 20101022
  Receipt Date: 20101013
  Transmission Date: 20110411
  Serious: Yes (Hospitalization, Other)
  Sender: FDA-Public Use
  Company Number: BR-US-EMD SERONO, INC.-7014262

PATIENT
  Sex: Female

DRUGS (7)
  1. REBIF [Suspect]
     Indication: RELAPSING-REMITTING MULTIPLE SCLEROSIS
     Route: 058
     Dates: start: 20060530, end: 20100601
  2. SIRDALUD (TIZANIDINE) [Concomitant]
  3. CARBAMAZEPINE [Concomitant]
  4. AMITRIPTYLINE HCL [Concomitant]
  5. METHOTREXATE [Concomitant]
  6. PARACETAMOL [Concomitant]
  7. FOLIC ACID [Concomitant]

REACTIONS (2)
  - BLINDNESS [None]
  - URINARY TRACT INFECTION [None]
